FAERS Safety Report 7148215-6 (Version None)
Quarter: 2010Q4

REPORT INFORMATION
  Report Type: 
  Country: None (occurrence: None)
  Receive Date: 20101209
  Receipt Date: 20101126
  Transmission Date: 20110411
  Serious: Yes (Hospitalization, Other)
  Sender: FDA-Public Use
  Company Number: PHHY2010JP80917

PATIENT
  Sex: Female
  Weight: 47 kg

DRUGS (11)
  1. ICL670A ICL+DISTAB [Suspect]
     Indication: IRON OVERLOAD
     Dosage: 1000 MG
     Route: 048
     Dates: start: 20090813, end: 20090819
  2. ICL670A ICL+DISTAB [Suspect]
     Dosage: 500 MG
     Route: 048
     Dates: start: 20090826, end: 20090929
  3. NEORAL [Concomitant]
     Indication: APLASIA PURE RED CELL
     Dosage: 100 MG
     Route: 048
     Dates: start: 20090813, end: 20100217
  4. VALTREX [Concomitant]
     Dosage: 500 MG
     Route: 048
     Dates: start: 20090813, end: 20100217
  5. DOGMATYL [Concomitant]
     Dosage: 50MG
     Route: 048
     Dates: start: 20090813, end: 20100217
  6. PARIET [Concomitant]
     Dosage: 10MG
     Route: 048
     Dates: start: 20090813, end: 20100217
  7. MUCOSTA [Concomitant]
     Dosage: 100MG
     Route: 048
     Dates: start: 20090813, end: 20100217
  8. BACTRIM [Concomitant]
     Dosage: 4DF
     Route: 048
     Dates: start: 20090813, end: 20100217
  9. MYSLEE [Concomitant]
     Indication: INSOMNIA
     Dosage: 5MG
     Route: 048
     Dates: start: 20090813, end: 20100217
  10. PURSENNID [Concomitant]
     Indication: CONSTIPATION
     Dosage: 24MG
     Route: 048
     Dates: start: 20090813, end: 20100217
  11. MAGMITT [Concomitant]
     Indication: CONSTIPATION
     Dosage: 990MG
     Route: 048
     Dates: start: 20090813, end: 20100217

REACTIONS (3)
  - ABDOMINAL PAIN UPPER [None]
  - FRACTURE [None]
  - STOMATITIS [None]
